FAERS Safety Report 10474264 (Version 1)
Quarter: 2014Q3

REPORT INFORMATION
  Report Type: Spontaneous
  Country: ES (occurrence: ES)
  Receive Date: 20140924
  Receipt Date: 20140924
  Transmission Date: 20150326
  Serious: Yes (Other)
  Sender: FDA-Public Use
  Company Number: ES-B.I. PHARMACEUTICALS,INC./RIDGEFIELD-2014-BI-45341ES

PATIENT
  Age: 77 Year
  Sex: Male
  Weight: 74 kg

DRUGS (13)
  1. ALIMTA [Suspect]
     Active Substance: PEMETREXED DISODIUM
     Indication: MESOTHELIOMA
     Route: 042
     Dates: start: 20140905
  2. INSULINA NOVORAPID [Concomitant]
     Indication: DIABETES MELLITUS
     Dosage: DOSE PER APPLICATION: 6-8IU ACCORDING TO BLOOD GLUCOSE.
     Route: 065
  3. DUODART [Concomitant]
     Active Substance: DUTASTERIDE\TAMSULOSIN
     Indication: PROSTATIC ADENOMA
     Dosage: DOSE PER APPLICATION AND DAILY DOSE: 0.5-0.4MG
     Route: 065
  4. TRAMADOL [Concomitant]
     Active Substance: TRAMADOL
     Indication: PAIN
     Route: 065
  5. JENTADUETO [Suspect]
     Active Substance: LINAGLIPTIN\METFORMIN HYDROCHLORIDE
     Indication: DIABETES MELLITUS
     Dosage: DOSE PER APPLICATION AND DAILY DOSE: 2.5 MG/850MG
     Route: 048
  6. ALOPURINOL [Concomitant]
     Active Substance: ALLOPURINOL
     Indication: HYPERURICAEMIA
     Dosage: 300 MG
     Route: 065
  7. CARBOPLATINO [Concomitant]
     Active Substance: CARBOPLATIN
     Indication: MESOTHELIOMA
     Route: 065
     Dates: start: 20140905
  8. HIBOR [Concomitant]
     Active Substance: BEMIPARIN SODIUM
     Indication: CARDIAC DISORDER
     Dosage: 7500 U
     Route: 065
  9. DOCLIS RETARD [Concomitant]
     Indication: CARDIAC DISORDER
     Dosage: 240 MG
     Route: 065
  10. PARACETAMOL [Concomitant]
     Active Substance: ACETAMINOPHEN
     Indication: PAIN
     Dosage: 3 G
     Route: 065
     Dates: start: 20140905
  11. INSULINA LANTUS [Concomitant]
     Indication: DIABETES MELLITUS
     Dosage: 22 U
     Route: 065
  12. METAMIZOL [Concomitant]
     Active Substance: METAMIZOLE SODIUM
     Indication: PAIN
     Dosage: 1725 MG
     Route: 065
  13. PRIMPERAN [Concomitant]
     Active Substance: METOCLOPRAMIDE HYDROCHLORIDE
     Indication: NAUSEA
     Dosage: 30 MG
     Route: 065
     Dates: start: 20140905

REACTIONS (1)
  - Epistaxis [Unknown]

NARRATIVE: CASE EVENT DATE: 20140916
